FAERS Safety Report 26218861 (Version 1)
Quarter: 2025Q4

REPORT INFORMATION
  Report Type: Spontaneous
  Country: US (occurrence: US)
  Receive Date: 20251231
  Receipt Date: 20251231
  Transmission Date: 20260117
  Serious: No
  Sender: DR REDDYS
  Company Number: US-DRL-USA-USA/2025/12/018888

PATIENT
  Age: 80 Year
  Sex: Male

DRUGS (1)
  1. LENALIDOMIDE [Suspect]
     Active Substance: LENALIDOMIDE
     Indication: Product used for unknown indication
     Route: 065
     Dates: start: 2022

REACTIONS (7)
  - Drug intolerance [Unknown]
  - Paraesthesia [Unknown]
  - Pruritus [Unknown]
  - Head discomfort [Unknown]
  - Headache [Unknown]
  - Swelling face [Unknown]
  - Periorbital swelling [Unknown]
